FAERS Safety Report 10027681 (Version 1)
Quarter: 2014Q1

REPORT INFORMATION
  Report Type: Spontaneous
  Country: US (occurrence: US)
  Receive Date: 20140321
  Receipt Date: 20140321
  Transmission Date: 20141002
  Serious: Yes (Other)
  Sender: FDA-Public Use
  Company Number: US-BAYER-2014-041860

PATIENT
  Age: 19 Year
  Sex: Female
  Weight: 104.8 kg

DRUGS (1)
  1. YASMIN [Suspect]

REACTIONS (1)
  - Myocardial infarction [None]
